FAERS Safety Report 25486677 (Version 1)
Quarter: 2025Q2

REPORT INFORMATION
  Report Type: Report from Study
  Country: AR (occurrence: AR)
  Receive Date: 20250627
  Receipt Date: 20250627
  Transmission Date: 20250717
  Serious: Yes (Death)
  Sender: ASTELLAS
  Company Number: AR-PFIZER INC-PV202500075681

PATIENT
  Age: 86 Year
  Sex: Male

DRUGS (1)
  1. ENFORTUMAB VEDOTIN-EJFV [Suspect]
     Active Substance: ENFORTUMAB VEDOTIN-EJFV
     Indication: Transitional cell carcinoma
     Dosage: 90 MG EVERY 7 DAYS?POWDER FOR SOLUTION FOR INFUSION
     Route: 042
     Dates: start: 20240125, end: 202506

REACTIONS (1)
  - Death [Fatal]

NARRATIVE: CASE EVENT DATE: 20250601
